FAERS Safety Report 4615228-5 (Version None)
Quarter: 2005Q1

REPORT INFORMATION
  Report Type: 
  Country: None (occurrence: None)
  Receive Date: 20050317
  Receipt Date: 20050314
  Transmission Date: 20050727
  Serious: Yes (Death, Hospitalization)
  Sender: FDA-Public Use
  Company Number: HQWYE106714MAR05

PATIENT
  Age: 31 Year
  Sex: Female

DRUGS (3)
  1. RAPAMUNE [Suspect]
     Indication: PROPHYLAXIS AGAINST TRANSPLANT REJECTION
     Dosage: 2 MG 1X PER 1 DAY, ORAL
     Route: 048
     Dates: start: 20050216, end: 20050301
  2. RAPAMUNE [Suspect]
     Dosage: 5 MG 1X PER 1 DAY, ORAL
     Route: 048
     Dates: start: 20050302, end: 20050310
  3. PREDNISONE [Concomitant]

REACTIONS (10)
  - ASCITES [None]
  - CARDIOPULMONARY FAILURE [None]
  - DRUG INEFFECTIVE [None]
  - HAEMOGLOBIN DECREASED [None]
  - HYPOTENSION [None]
  - INCISION SITE COMPLICATION [None]
  - KIDNEY TRANSPLANT REJECTION [None]
  - PERIRENAL HAEMATOMA [None]
  - PULMONARY EMBOLISM [None]
  - THERAPY NON-RESPONDER [None]
